FAERS Safety Report 8599228-9 (Version None)
Quarter: 2012Q3

REPORT INFORMATION
  Report Type: 
  Country: None (occurrence: None)
  Receive Date: 20120816
  Receipt Date: 20111205
  Transmission Date: 20120928
  Serious: No
  Sender: FDA-Public Use
  Company Number: US-AMGEN-USASP2011044890

PATIENT
  Age: 49 Year
  Sex: Male
  Weight: 80 kg

DRUGS (14)
  1. NEULASTA [Suspect]
     Indication: CHEMOTHERAPY
     Dosage: 6 MG, UNK
     Dates: start: 20110813
  2. NEUPOGEN [Suspect]
     Indication: CHEMOTHERAPY
     Dosage: UNK
     Dates: start: 20110815
  3. GEMZAR [Concomitant]
     Dosage: UNK
     Dates: start: 20110822, end: 20111116
  4. OXYCODONE [Concomitant]
     Dosage: UNK
     Dates: start: 20111012
  5. BACTROBAN [Concomitant]
     Route: 061
  6. ONDANSETRON [Concomitant]
     Dosage: UNK
     Dates: start: 20111019
  7. OXALIPLATIN [Concomitant]
     Dosage: UNK
     Dates: start: 20110823, end: 20111119
  8. NYSTATIN [Concomitant]
     Dosage: UNK
     Route: 048
     Dates: start: 20111019
  9. REMERON [Concomitant]
     Dosage: UNK
     Dates: start: 20110921
  10. ARANESP [Suspect]
     Indication: ANAEMIA OF MALIGNANT DISEASE
     Dosage: UNK
     Dates: start: 20110813
  11. NPLATE [Suspect]
     Indication: IDIOPATHIC THROMBOCYTOPENIC PURPURA
     Dosage: 500 MUG, PRN
     Route: 058
     Dates: start: 20110815
  12. MELATONIN [Concomitant]
     Dosage: UNK
     Dates: start: 20110919
  13. RESTORIL [Concomitant]
     Dosage: UNK
     Dates: start: 20111012
  14. ALDACTONE [Concomitant]
     Dosage: UNK
     Dates: start: 20111012

REACTIONS (4)
  - OEDEMA PERIPHERAL [None]
  - NAUSEA [None]
  - BURNING SENSATION [None]
  - ARTHRALGIA [None]
